FAERS Safety Report 9219408 (Version 3)
Quarter: 2013Q3

REPORT INFORMATION
  Report Type: Spontaneous
  Country: US (occurrence: US)
  Receive Date: 20130409
  Receipt Date: 20130710
  Transmission Date: 20140515
  Serious: Yes (Other)
  Sender: FDA-Public Use
  Company Number: US-PFIZER INC-2013109860

PATIENT
  Age: 56 Year
  Sex: Male
  Weight: 107 kg

DRUGS (4)
  1. SUTENT [Suspect]
     Indication: NEOPLASM MALIGNANT
     Dosage: 37.5 MG, CYCLIC
     Dates: start: 20130318
  2. SUTENT [Suspect]
     Indication: RENAL CELL CARCINOMA
  3. FLOMAX [Concomitant]
     Indication: PROSTATE CANCER
     Dosage: UNK, ALTERNATE DAY
  4. VITAMIN D [Concomitant]
     Dosage: UNK

REACTIONS (7)
  - Second primary malignancy [Unknown]
  - Lip and/or oral cavity cancer [Unknown]
  - Renal disorder [Unknown]
  - Dysgeusia [Not Recovered/Not Resolved]
  - Mouth haemorrhage [Unknown]
  - Bone loss [Unknown]
  - Blood pressure increased [Unknown]
